FAERS Safety Report 26089570 (Version 1)
Quarter: 2025Q4

REPORT INFORMATION
  Report Type: Spontaneous
  Country: US (occurrence: US)
  Receive Date: 20251125
  Receipt Date: 20251125
  Transmission Date: 20260118
  Serious: Yes (Other)
  Sender: VERTEX
  Company Number: US-VERTEX PHARMACEUTICALS-2025-019519

PATIENT
  Age: 54 Year
  Sex: Female

DRUGS (2)
  1. JOURNAVX [Suspect]
     Active Substance: SUZETRIGINE
     Indication: Product used for unknown indication
     Dosage: LOADING DOSE, SINGLE
     Dates: start: 20251103, end: 20251103
  2. JOURNAVX [Suspect]
     Active Substance: SUZETRIGINE
     Dosage: 1 TABLET (50 MG), EVERY 10 HOURS
     Dates: start: 20251103, end: 20251103

REACTIONS (5)
  - Hypotension [Recovered/Resolved]
  - Off label use [Unknown]
  - Rash [Recovered/Resolved]
  - Nausea [Unknown]
  - Flushing [Unknown]

NARRATIVE: CASE EVENT DATE: 20251103
